FAERS Safety Report 5611760-6 (Version None)
Quarter: 2008Q1

REPORT INFORMATION
  Report Type: 
  Country: None (occurrence: None)
  Receive Date: 20080128
  Receipt Date: 20080111
  Transmission Date: 20080703
  Serious: Yes (Hospitalization)
  Sender: FDA-Public Use
  Company Number: 107#08#2008-00230

PATIENT
  Age: 24 Year
  Sex: Female

DRUGS (1)
  1. CLONAZEPAM [Suspect]
     Indication: AGITATION
     Dosage: 0.5 MG INCREASED TO 180 MG IN 3

REACTIONS (13)
  - AGITATION [None]
  - ALCOHOLISM [None]
  - ANGER [None]
  - DEPRESSED MOOD [None]
  - DRUG DEPENDENCE [None]
  - DRUG TOLERANCE [None]
  - IMPULSIVE BEHAVIOUR [None]
  - INSOMNIA [None]
  - IRRITABILITY [None]
  - OVERDOSE [None]
  - SYNCOPE [None]
  - TENSION [None]
  - WITHDRAWAL SYNDROME [None]
